FAERS Safety Report 4998656-8 (Version None)
Quarter: 2006Q2

REPORT INFORMATION
  Report Type: 
  Country: None (occurrence: None)
  Receive Date: 20060509
  Receipt Date: 20060428
  Transmission Date: 20061013
  Serious: Yes (Death)
  Sender: FDA-Public Use
  Company Number: GXKR2006DE02148

PATIENT
  Age: 30 Year
  Sex: Male

DRUGS (6)
  1. PREDNISOLONE [Suspect]
     Indication: COLITIS ULCERATIVE
     Dosage: 60 MG, QD, ORAL; SEE IMAGE
     Route: 048
     Dates: start: 20040401
  2. PREDNISOLONE [Suspect]
     Indication: COLITIS ULCERATIVE
     Dosage: 60 MG, QD, ORAL; SEE IMAGE
     Route: 048
     Dates: start: 20040501
  3. PREDNISOLONE [Suspect]
     Indication: COLITIS ULCERATIVE
     Dosage: 60 MG, QD, ORAL; SEE IMAGE
     Route: 048
     Dates: start: 20040601
  4. PREDNISOLONE [Suspect]
     Indication: COLITIS ULCERATIVE
     Dosage: 60 MG, QD, ORAL; SEE IMAGE
     Route: 048
     Dates: start: 20040601
  5. HYDROCORTISONE [Suspect]
     Dosage: 200 MG, QID
     Dates: start: 20040601
  6. MESALAMINE [Concomitant]

REACTIONS (9)
  - ABDOMINAL DISCOMFORT [None]
  - CELLULITIS [None]
  - GAS GANGRENE [None]
  - HYPERKALAEMIA [None]
  - LACTIC ACIDOSIS [None]
  - MULTI-ORGAN FAILURE [None]
  - SENSORY DISTURBANCE [None]
  - SEPTIC SHOCK [None]
  - SUBCUTANEOUS EMPHYSEMA [None]
